FAERS Safety Report 13046908 (Version 1)
Quarter: 2016Q4

REPORT INFORMATION
  Report Type: Spontaneous
  Country: US (occurrence: US)
  Receive Date: 20161220
  Receipt Date: 20161220
  Transmission Date: 20170207
  Serious: No
  Sender: FDA-Public Use
  Company Number: US-PFIZER INC-2016578853

PATIENT

DRUGS (2)
  1. IBUPROFEN. [Suspect]
     Active Substance: IBUPROFEN
     Dosage: 200 MG, SINGLE (1 TIME) ^ODT PROTOTYPE^
     Route: 048
     Dates: start: 20161209, end: 20161209
  2. CHILDRENS ADVIL [Suspect]
     Active Substance: IBUPROFEN
     Dosage: 5 ML, UNK

REACTIONS (5)
  - Throat irritation [Unknown]
  - Dry mouth [Unknown]
  - Drug administered to patient of inappropriate age [Unknown]
  - Tongue discomfort [Recovered/Resolved]
  - Retching [Recovered/Resolved]

NARRATIVE: CASE EVENT DATE: 20161209
